FAERS Safety Report 9728572 (Version 1)
Quarter: 2013Q4

REPORT INFORMATION
  Report Type: Spontaneous
  Country: SE (occurrence: None)
  Receive Date: 20131202
  Receipt Date: 20131202
  Transmission Date: 20140711
  Serious: Yes (Hospitalization)
  Sender: FDA-Public Use
  Company Number: SYM-2013-13470

PATIENT
  Age: 32 Year
  Sex: Female

DRUGS (2)
  1. VOXRA [Suspect]
     Indication: ANXIETY
     Dates: start: 20131030, end: 20131105
  2. OXAZEPAM (OXAZEPAM) (OXAZEPAM) [Concomitant]

REACTIONS (5)
  - Anxiety [None]
  - Feeling abnormal [None]
  - Bone pain [None]
  - Musculoskeletal stiffness [None]
  - Joint stiffness [None]
